FAERS Safety Report 23689597 (Version 1)
Quarter: 2024Q1

REPORT INFORMATION
  Report Type: Spontaneous
  Country: US (occurrence: US)
  Receive Date: 20240331
  Receipt Date: 20240331
  Transmission Date: 20240409
  Serious: No
  Sender: FDA-Public Use
  Company Number: US-TEVA-VS-3139114

PATIENT
  Age: 71 Year
  Sex: Female

DRUGS (1)
  1. LETROZOLE [Suspect]
     Active Substance: LETROZOLE
     Indication: Product used for unknown indication
     Route: 065

REACTIONS (9)
  - Malaise [Unknown]
  - Depression [Unknown]
  - Headache [Unknown]
  - Feeling jittery [Unknown]
  - Respiration abnormal [Unknown]
  - Anxiety [Unknown]
  - Dry mouth [Unknown]
  - Dysphonia [Unknown]
  - Panic attack [Unknown]
